FAERS Safety Report 15129641 (Version 2)
Quarter: 2018Q4

REPORT INFORMATION
  Report Type: Report from Study
  Country: US (occurrence: US)
  Receive Date: 20180711
  Receipt Date: 20181217
  Transmission Date: 20190204
  Serious: No
  Sender: FDA-Public Use
  Company Number: US-SA-2017SA208816

PATIENT
  Age: 62 Year
  Sex: Female

DRUGS (4)
  1. TERIFLUNOMIDE. [Suspect]
     Active Substance: TERIFLUNOMIDE
     Dosage: 14 MG, QD
     Route: 048
     Dates: start: 20150826
  2. TERIFLUNOMIDE. [Suspect]
     Active Substance: TERIFLUNOMIDE
     Indication: MULTIPLE SCLEROSIS
     Dosage: 14 MG, QD
     Route: 048
     Dates: start: 20140825
  3. TERIFLUNOMIDE. [Suspect]
     Active Substance: TERIFLUNOMIDE
     Dosage: 14 MG, QD
     Route: 048
  4. TERIFLUNOMIDE. [Suspect]
     Active Substance: TERIFLUNOMIDE
     Dosage: 14 MG, QD
     Route: 048
     Dates: start: 20150815

REACTIONS (10)
  - Emotional disorder [Unknown]
  - Abdominal discomfort [Not Recovered/Not Resolved]
  - Hypoaesthesia [Unknown]
  - Balance disorder [Not Recovered/Not Resolved]
  - Tremor [Unknown]
  - Condition aggravated [Unknown]
  - Loss of personal independence in daily activities [Not Recovered/Not Resolved]
  - Alopecia [Unknown]
  - Paraesthesia [Unknown]
  - Alopecia [Not Recovered/Not Resolved]
